FAERS Safety Report 9890374 (Version 1)
Quarter: 2014Q1

REPORT INFORMATION
  Report Type: Spontaneous
  Country: GB (occurrence: GB)
  Receive Date: 20140212
  Receipt Date: 20140212
  Transmission Date: 20141002
  Serious: Yes (Other)
  Sender: FDA-Public Use
  Company Number: GB-JNJFOC-20140119559

PATIENT
  Sex: Female

DRUGS (2)
  1. SUDAFED MUCUS RELIEF TRIPLE ACTION [Suspect]
     Indication: NASOPHARYNGITIS
     Route: 065
  2. LAMOTRIGINE [Interacting]
     Indication: EPILEPSY
     Route: 065

REACTIONS (3)
  - Convulsion [Unknown]
  - Drug interaction [Unknown]
  - Nasopharyngitis [Unknown]
